FAERS Safety Report 21400222 (Version 1)
Quarter: 2022Q3

REPORT INFORMATION
  Report Type: Spontaneous
  Country: US (occurrence: None)
  Receive Date: 20220929
  Receipt Date: 20220929
  Transmission Date: 20221026
  Serious: No
  Sender: FDA-Public Use
  Company Number: None

PATIENT
  Age: 44 Year
  Sex: Male

DRUGS (1)
  1. TALTZ [Suspect]
     Active Substance: IXEKIZUMAB
     Indication: Psoriasis
     Dosage: 80MG/ML EVERY 4 WEEKS UNDER THE SKIN?
     Route: 058
     Dates: start: 202011

REACTIONS (3)
  - Device defective [None]
  - Needle issue [None]
  - Drug dose omission by device [None]

NARRATIVE: CASE EVENT DATE: 20220922
